FAERS Safety Report 23577639 (Version 2)
Quarter: 2025Q1

REPORT INFORMATION
  Report Type: Spontaneous
  Country: US (occurrence: US)
  Receive Date: 20240228
  Receipt Date: 20250303
  Transmission Date: 20250408
  Serious: No
  Sender: NOVO NORDISK
  Company Number: US-NOVOPROD-1099244

PATIENT
  Age: 49 Year
  Sex: Female

DRUGS (2)
  1. SAXENDA [Suspect]
     Active Substance: LIRAGLUTIDE
     Indication: Weight control
     Dosage: 0.6 MG, QD
     Route: 058
  2. RABIES VACCINE [Concomitant]
     Active Substance: RABIES VACCINE
     Indication: Animal bite

REACTIONS (6)
  - Cold sweat [Recovered/Resolved]
  - Dizziness [Not Recovered/Not Resolved]
  - Gastrooesophageal reflux disease [Unknown]
  - Feeling abnormal [Unknown]
  - Fatigue [Unknown]
  - Injection site bruising [Unknown]

NARRATIVE: CASE EVENT DATE: 20230723
